FAERS Safety Report 16275861 (Version 1)
Quarter: 2019Q2

REPORT INFORMATION
  Report Type: Spontaneous
  Country: US (occurrence: US)
  Receive Date: 20190330
  Receipt Date: 20190330
  Transmission Date: 20190711
  Serious: Yes (Death)
  Sender: FDA-Public Use
  Company Number: None

PATIENT
  Age: 61 Year
  Sex: Female
  Weight: 51.71 kg

DRUGS (1)
  1. NALOXEGOL OXALATE. [Suspect]
     Active Substance: NALOXEGOL OXALATE
     Dates: end: 20190323

REACTIONS (8)
  - Blood potassium decreased [None]
  - Upper respiratory tract infection [None]
  - Diarrhoea [None]
  - Sputum discoloured [None]
  - Cough [None]
  - Refusal of treatment by patient [None]
  - Cardiopulmonary failure [None]
  - Lung neoplasm malignant [None]

NARRATIVE: CASE EVENT DATE: 20190324
